FAERS Safety Report 9704233 (Version 1)
Quarter: 2013Q4

REPORT INFORMATION
  Report Type: Spontaneous
  Country: NL (occurrence: NL)
  Receive Date: 20131122
  Receipt Date: 20131122
  Transmission Date: 20140711
  Serious: Yes (Other)
  Sender: FDA-Public Use
  Company Number: NL-PFIZER INC-2013329403

PATIENT
  Age: 72 Year
  Sex: Female

DRUGS (7)
  1. LATANOPROST PFIZER [Suspect]
  2. OMEPRAZOL [Concomitant]
     Dosage: 40 MG, UNK
  3. DUSPATAL DUPHAR [Concomitant]
  4. MEBEVERINE [Concomitant]
  5. VENLAFAXINE [Concomitant]
     Dosage: 75 MG, UNK
  6. METOPROLOL [Concomitant]
     Dosage: 50 MG, 2X/DAY
  7. CHLORAZEPAM [Concomitant]

REACTIONS (4)
  - Urinary tract infection [Unknown]
  - Intraocular pressure increased [Unknown]
  - Eye pain [Unknown]
  - Dry eye [Unknown]
